FAERS Safety Report 9602217 (Version 1)
Quarter: 2013Q4

REPORT INFORMATION
  Report Type: Spontaneous
  Country: GB (occurrence: None)
  Receive Date: 20131003
  Receipt Date: 20131003
  Transmission Date: 20140711
  Serious: Yes (Other)
  Sender: FDA-Public Use
  Company Number: ACO_38789_2013

PATIENT
  Age: 53 Year
  Sex: Female

DRUGS (1)
  1. FAMPYRA [Suspect]
     Indication: PRODUCT USED FOR UNKNOWN INDICATION
     Dates: end: 201305

REACTIONS (3)
  - Convulsion [None]
  - Accidental overdose [None]
  - Gait disturbance [None]
